FAERS Safety Report 9824124 (Version 2)
Quarter: 2014Q1

REPORT INFORMATION
  Report Type: Spontaneous
  Country: US (occurrence: US)
  Receive Date: 20140116
  Receipt Date: 20140116
  Transmission Date: 20141002
  Serious: No
  Sender: FDA-Public Use
  Company Number: US-GILEAD-2011-0040224

PATIENT
  Sex: Female

DRUGS (13)
  1. LETAIRIS [Suspect]
     Indication: PULMONARY HYPERTENSION
     Route: 048
     Dates: start: 201009
  2. LETAIRIS [Suspect]
     Indication: SCLERODERMA
  3. LETAIRIS [Suspect]
     Indication: IDIOPATHIC PULMONARY FIBROSIS
  4. LETAIRIS [Suspect]
     Indication: INTERSTITIAL LUNG DISEASE
  5. LETAIRIS [Suspect]
     Indication: CREST SYNDROME
  6. LEVOTHYROXINE [Concomitant]
  7. KLOR-CON [Concomitant]
  8. NEXIUM                             /01479302/ [Concomitant]
  9. ASA [Concomitant]
  10. CALCIUM [Concomitant]
  11. ERGOCALCIFEROL/NICOTINAMIDE/RETINOL/ASCORBIC ACID/FOLIC ACID/PANTHENOL/RIBOFLAVIN/THIAMINE HYDROCHLO [Concomitant]
  12. OXYGEN [Concomitant]
  13. LASIX [Concomitant]

REACTIONS (1)
  - Epistaxis [Unknown]
